FAERS Safety Report 4906424-8 (Version None)
Quarter: 2006Q1

REPORT INFORMATION
  Report Type: 
  Country: None (occurrence: None)
  Receive Date: 20060206
  Receipt Date: 20060125
  Transmission Date: 20060701
  Serious: Yes (Death)
  Sender: FDA-Public Use
  Company Number: 220708

PATIENT
  Age: 1 Year
  Sex: Male

DRUGS (7)
  1. NUTROPIN AQ [Suspect]
     Indication: RENAL DYSPLASIA
     Dosage: 0.5 MG, QD, SUBCUTANEOUS
     Route: 058
     Dates: start: 20050615
  2. ALKALI THERAPY NOS (ALKALI THERAPY NOS [Concomitant]
  3. AMLODIPINE BESYLATE [Concomitant]
  4. CLONIDINE PATCH (CLONIDINE HYDROCHLORIDE) [Concomitant]
  5. ERYTHROPOIETIN (EPOETIN NOS) [Concomitant]
  6. IRON (IRON NOS) [Concomitant]
  7. PULMICORT [Concomitant]

REACTIONS (1)
  - RESPIRATORY ARREST [None]
